FAERS Safety Report 15849669 (Version 2)
Quarter: 2019Q1

REPORT INFORMATION
  Report Type: Spontaneous
  Country: US (occurrence: US)
  Receive Date: 20190121
  Receipt Date: 20190204
  Transmission Date: 20190417
  Serious: Yes (Death, Hospitalization)
  Sender: FDA-Public Use
  Company Number: US-AKORN PHARMACEUTICALS-2019AKN00003

PATIENT
  Age: 66 Year
  Sex: Male
  Weight: 90.7 kg

DRUGS (10)
  1. SIMVASTATIN. [Concomitant]
     Active Substance: SIMVASTATIN
  2. MYORISAN [Suspect]
     Active Substance: ISOTRETINOIN
     Indication: ACNE CYSTIC
  3. AMLODIPINE [Concomitant]
     Active Substance: AMLODIPINE BESYLATE
  4. VALSARTAN - HYDROCHLOROTHIAZIDE [Concomitant]
  5. OMEPRAZOLE. [Concomitant]
     Active Substance: OMEPRAZOLE
  6. TEMAZEPAM. [Concomitant]
     Active Substance: TEMAZEPAM
  7. MYORISAN [Suspect]
     Active Substance: ISOTRETINOIN
     Indication: CYST
     Dosage: 10 MG, 1X/DAY
     Dates: start: 20180312, end: 2018
  8. ZYPREXA [Concomitant]
     Active Substance: OLANZAPINE
  9. METFORMIN [Concomitant]
     Active Substance: METFORMIN HYDROCHLORIDE
  10. VENTOLIN HFA [Concomitant]
     Active Substance: ALBUTEROL SULFATE

REACTIONS (4)
  - Dyspnoea [Unknown]
  - Off label use [Recovered/Resolved]
  - Pyrexia [Unknown]
  - Chronic lymphocytic leukaemia [Fatal]

NARRATIVE: CASE EVENT DATE: 2018
